FAERS Safety Report 23158305 (Version 1)
Quarter: 2023Q4

REPORT INFORMATION
  Report Type: Spontaneous
  Country: US (occurrence: US)
  Receive Date: 20231108
  Receipt Date: 20231108
  Transmission Date: 20240109
  Serious: Yes (Hospitalization)
  Sender: FDA-Public Use
  Company Number: US-BRAEBURN-US-BRA-23-000030

PATIENT

DRUGS (12)
  1. BRIXADI [Suspect]
     Active Substance: BUPRENORPHINE
     Indication: Product used for unknown indication
     Dosage: UNK
     Route: 065
  2. BRIXADI [Suspect]
     Active Substance: BUPRENORPHINE
     Dosage: 16 MILLIGRAM
     Route: 065
     Dates: start: 20230921
  3. BRIXADI [Suspect]
     Active Substance: BUPRENORPHINE
     Dosage: 24 MILLIGRAM
     Route: 065
     Dates: start: 20231006
  4. BRIXADI [Suspect]
     Active Substance: BUPRENORPHINE
     Dosage: 24 MILLIGRAM
     Route: 065
     Dates: start: 20231012
  5. BRIXADI [Suspect]
     Active Substance: BUPRENORPHINE
     Dosage: 24 MILLIGRAM
     Route: 065
     Dates: start: 20231017
  6. BRIXADI [Suspect]
     Active Substance: BUPRENORPHINE
     Dosage: 24 MILLIGRAM
     Route: 065
     Dates: start: 20231023
  7. AMITRIPTYLINE [Concomitant]
     Active Substance: AMITRIPTYLINE
     Indication: Product used for unknown indication
     Route: 065
  8. CLONIDINE [Concomitant]
     Active Substance: CLONIDINE
     Indication: Product used for unknown indication
     Dosage: UNK
     Route: 065
     Dates: end: 20230929
  9. HYDROXYZINE [Concomitant]
     Active Substance: HYDROXYZINE HYDROCHLORIDE
     Indication: Product used for unknown indication
     Dosage: UNK
     Route: 065
  10. HEROIN [Concomitant]
     Active Substance: DIAMORPHINE
     Indication: Product used for unknown indication
     Dosage: #30 DAILY
     Route: 055
     Dates: start: 2015, end: 20230901
  11. FENTANYL [Concomitant]
     Active Substance: FENTANYL\FENTANYL CITRATE
     Indication: Product used for unknown indication
     Dosage: #30 DAILY
     Route: 055
     Dates: start: 2015, end: 20230901
  12. METHAMPHETAMINE [Concomitant]
     Active Substance: METHAMPHETAMINE
     Indication: Product used for unknown indication
     Dosage: 5GM DAILY
     Route: 055
     Dates: start: 2015, end: 20230911

REACTIONS (1)
  - Withdrawal syndrome [Unknown]
